FAERS Safety Report 10038389 (Version 2)
Quarter: 2014Q2

REPORT INFORMATION
  Report Type: Spontaneous
  Country: US (occurrence: US)
  Receive Date: 20140326
  Receipt Date: 20140428
  Transmission Date: 20141212
  Serious: Yes (Death, Other)
  Sender: FDA-Public Use
  Company Number: US-MERCK-1403USA011459

PATIENT
  Sex: Female
  Weight: 90.7 kg

DRUGS (7)
  1. JANUVIA [Suspect]
     Indication: TYPE 2 DIABETES MELLITUS
     Dosage: UNK
     Route: 048
     Dates: start: 2010
  2. HYDROCHLOROTHIAZIDE (+) SPIRONOLACTONE [Concomitant]
     Indication: HYPERTENSION
     Dosage: 25/25 25-25
     Route: 048
  3. METOPROLOL [Concomitant]
     Indication: HYPERTENSION
     Dosage: 50 MG, UNK
     Route: 048
  4. NORVASC [Concomitant]
     Indication: HYPERTENSION
     Dosage: 10 MG, QD
     Route: 048
  5. HUMULIN R [Concomitant]
     Indication: TYPE 2 DIABETES MELLITUS
  6. METFORMIN [Concomitant]
     Indication: TYPE 2 DIABETES MELLITUS
     Dosage: 500 BID
     Route: 048
  7. LANTUS [Concomitant]
     Indication: TYPE 2 DIABETES MELLITUS
     Dosage: 100 UNITS/ML HS
     Route: 058

REACTIONS (14)
  - Pancreatic carcinoma [Fatal]
  - Pancreaticoduodenectomy [Unknown]
  - Knee arthroplasty [Unknown]
  - Knee arthroplasty [Unknown]
  - Pancreatitis [Unknown]
  - Vision blurred [Unknown]
  - Stent placement [Unknown]
  - Electrocardiogram T wave abnormal [Unknown]
  - Cataract operation [Unknown]
  - Necrosis [Unknown]
  - Chronic obstructive pulmonary disease [Not Recovered/Not Resolved]
  - Emotional distress [Unknown]
  - Osteoarthritis [Unknown]
  - Gastrooesophageal reflux disease [Unknown]
